FAERS Safety Report 6406366-5 (Version None)
Quarter: 2009Q4

REPORT INFORMATION
  Report Type: 
  Country: None (occurrence: None)
  Receive Date: 20091019
  Receipt Date: 20091005
  Transmission Date: 20100525
  Serious: Yes (Hospitalization)
  Sender: FDA-Public Use
  Company Number: US-MYLANLABS-2009S1017371

PATIENT
  Age: 40 Year
  Sex: Female

DRUGS (8)
  1. CLOZAPINE [Suspect]
     Indication: SCHIZOAFFECTIVE DISORDER
     Dosage: 200 MG TWICE DAILY, 300MG AT BEDTIME
  2. TOPIRAMATE [Concomitant]
     Dosage: 100MG TWICE DAILY, 50MG AT BEDTIME
  3. ALPRAZOLAM [Concomitant]
     Dosage: 1MG IN THE MORNING, 0.5MG IN THE EVENING, 0.5MG AT BEDTIME
  4. VENLAFAXINE [Concomitant]
     Dosage: VENLAFAXINE XR 225MG DAILY
  5. OXYBUTYNIN CHLORIDE [Concomitant]
  6. AMLODIPINE [Concomitant]
     Dosage: 5MG DAILY
  7. ZOLPIDEM [Concomitant]
     Dosage: 20MG AT NIGHT
  8. DEXTROPROPOXYPHENE [Concomitant]
     Indication: ANALGESIC THERAPY

REACTIONS (3)
  - CONSTIPATION [None]
  - INTESTINAL INFARCTION [None]
  - SEPTIC SHOCK [None]
